FAERS Safety Report 5175462-5 (Version None)
Quarter: 2006Q4

REPORT INFORMATION
  Report Type: 
  Country: None (occurrence: None)
  Receive Date: 20061215
  Receipt Date: 20061207
  Transmission Date: 20070319
  Serious: Yes (Life-Threatening, Hospitalization)
  Sender: FDA-Public Use
  Company Number: US-JNJFOC-20061202304

PATIENT
  Sex: Female
  Weight: 63.5 kg

DRUGS (8)
  1. DURAGESIC-100 [Suspect]
     Indication: BACK PAIN
     Route: 062
  2. AMIOTARONE [Concomitant]
     Indication: ATRIAL FIBRILLATION
     Route: 048
  3. CARBOLEVIDOPA [Concomitant]
     Indication: TREMOR
     Dosage: 20/100MG
     Route: 048
  4. NAMENDA [Concomitant]
     Indication: VASCULAR DEMENTIA
     Route: 048
  5. PAXIL [Concomitant]
     Indication: DEPRESSION
     Route: 065
  6. PLAVIX [Concomitant]
     Indication: ATRIAL FIBRILLATION
     Route: 048
  7. ACETYLSALICYLIC ACID SRT [Concomitant]
     Indication: ATRIAL FIBRILLATION
     Route: 048
  8. MORPHINE [Concomitant]
     Indication: BACK PAIN
     Route: 042

REACTIONS (3)
  - LEFT VENTRICULAR FAILURE [None]
  - MENTAL DISORDER [None]
  - RESPIRATORY FAILURE [None]
